FAERS Safety Report 15628832 (Version 1)
Quarter: 2018Q4

REPORT INFORMATION
  Report Type: Report from Study
  Country: CO (occurrence: CO)
  Receive Date: 20181116
  Receipt Date: 20181116
  Transmission Date: 20190205
  Serious: Yes (Death, Hospitalization)
  Sender: FDA-Public Use
  Company Number: CO-ACTELION-A-NJ2018-181088

PATIENT
  Age: 62 Year
  Sex: Male

DRUGS (7)
  1. SPIRONOLACTONE. [Concomitant]
     Active Substance: SPIRONOLACTONE
  2. ATORVASTATIN [Concomitant]
     Active Substance: ATORVASTATIN
  3. CARVEDILOL. [Concomitant]
     Active Substance: CARVEDILOL
  4. METOPROLOL. [Concomitant]
     Active Substance: METOPROLOL
  5. SILDENAFIL. [Concomitant]
     Active Substance: SILDENAFIL
  6. VENTAVIS [Suspect]
     Active Substance: ILOPROST
     Indication: PULMONARY ARTERIAL HYPERTENSION
     Dosage: 5 MCG/24HR, 6ID
     Route: 055
     Dates: start: 20120514, end: 20181109
  7. APIXABAN [Concomitant]
     Active Substance: APIXABAN

REACTIONS (2)
  - Heart rate increased [Not Recovered/Not Resolved]
  - Death [Fatal]

NARRATIVE: CASE EVENT DATE: 20181020
